FAERS Safety Report 7975372-1 (Version None)
Quarter: 2011Q4

REPORT INFORMATION
  Report Type: 
  Country: None (occurrence: None)
  Receive Date: 20111213
  Receipt Date: 20110926
  Transmission Date: 20120403
  Serious: No
  Sender: FDA-Public Use
  Company Number: US-AMGEN-USASP2011049638

PATIENT
  Age: 50 Year
  Sex: Female

DRUGS (2)
  1. SULFASALAZINE [Concomitant]
     Dosage: 2 MG, QD
     Dates: start: 20110701
  2. ENBREL [Suspect]
     Indication: RHEUMATOID ARTHRITIS
     Dosage: 50 MG, QWK
     Dates: start: 20110710

REACTIONS (2)
  - JOINT SWELLING [None]
  - ARTHRALGIA [None]
